FAERS Safety Report 8806521 (Version 3)
Quarter: 2014Q2

REPORT INFORMATION
  Report Type: Spontaneous
  Country: US (occurrence: US)
  Receive Date: 20120925
  Receipt Date: 20140613
  Transmission Date: 20141212
  Serious: Yes (Hospitalization)
  Sender: FDA-Public Use
  Company Number: US-BAYER-2012-099042

PATIENT
  Age: 32 Year
  Sex: Female
  Weight: 113.38 kg

DRUGS (13)
  1. YASMIN [Suspect]
     Indication: MENORRHAGIA
     Dosage: UNK
     Dates: start: 20061001, end: 20120428
  2. YASMIN [Suspect]
     Indication: ENDOMETRIOSIS
  3. YAZ [Suspect]
     Dosage: UNK
     Dates: start: 2005, end: 2013
  4. OCELLA [Suspect]
     Dosage: UNK
     Dates: start: 2005, end: 2013
  5. IBUPROFEN [Concomitant]
  6. IMODIUM [Concomitant]
     Indication: DIARRHOEA
     Dosage: 2 MG, EVERY DAY
     Route: 048
  7. AMOXICILLIN [Concomitant]
     Dosage: 6.5 MG, DAILY
  8. DEPO PROVERA [Concomitant]
     Dosage: 150 MG, UNK
     Route: 030
     Dates: start: 1999
  9. NICOTINE [Concomitant]
  10. MEDROXYPROGESTERONE ACETATE [Concomitant]
  11. TORADOL [Concomitant]
     Dosage: 30 MG, UNK
     Route: 042
  12. MORPHINE [Concomitant]
     Dosage: 4 MG, UNK
     Route: 042
  13. DILAUDID [Concomitant]
     Dosage: 0.5 MG, UNK
     Route: 042

REACTIONS (3)
  - Pulmonary embolism [None]
  - Pulmonary infarction [None]
  - Back pain [None]
